FAERS Safety Report 7380728-4 (Version None)
Quarter: 2011Q1

REPORT INFORMATION
  Report Type: 
  Country: None (occurrence: None)
  Receive Date: 20110329
  Receipt Date: 20091122
  Transmission Date: 20110831
  Serious: Yes (Death, Other)
  Sender: FDA-Public Use
  Company Number: US-BAYER-200940535NA

PATIENT
  Sex: Male

DRUGS (26)
  1. TRASYLOL [Suspect]
     Indication: CORONARY ARTERY BYPASS
     Route: 042
     Dates: start: 20080812
  2. VANCOMYCIN [Concomitant]
     Dosage: ONE GRAM OVER 60 MINUTES
     Route: 042
     Dates: start: 20080812, end: 20080812
  3. METOPROLOL TARTRATE [Concomitant]
     Dosage: 50 MG IN MORNING, 25 MG IN EVENING
     Route: 048
  4. GABAPENTIN [Concomitant]
     Dosage: 600 MG THREE
     Route: 048
  5. CILOSTAZOL [Concomitant]
     Dosage: 100 MG TWICE DAILY
     Route: 048
     Dates: start: 20070905
  6. KANAMYCIN [Concomitant]
     Dosage: UNK
     Dates: start: 20080812, end: 20080812
  7. OXYTROL [Concomitant]
     Dosage: UNK
     Route: 062
     Dates: start: 20080727
  8. INSULIN HUMULIN [Concomitant]
     Dosage: 3 UNITS/ HOUR
     Route: 042
     Dates: start: 20080812, end: 20080812
  9. NITROGLYCERIN [Concomitant]
     Dosage: 0.1 MG
     Route: 042
  10. HUMALOG [Concomitant]
     Dosage: 75/25; DOSING VARIED
     Route: 058
     Dates: start: 20070705
  11. CRESTOR [Concomitant]
     Dosage: 20 MG DAILY
     Route: 048
     Dates: start: 20080406
  12. PLETAL [Concomitant]
     Dosage: 100MG TWICE DAILY
     Route: 048
     Dates: start: 20080624
  13. LASIX [Concomitant]
     Dosage: 5 MG
     Route: 042
     Dates: start: 20080812, end: 20080812
  14. BACITRACIN [Concomitant]
     Dosage: UNK
     Route: 042
     Dates: start: 20080812, end: 20080812
  15. ACETYLSALICYLIC ACID SRT [Concomitant]
     Dosage: 81- 325 MG DAILY
     Route: 048
  16. TYLENOL REGULAR [Concomitant]
     Route: 048
  17. NICARDIPINE HYDROCHLORIDE [Concomitant]
     Dosage: 1.0 MG
     Route: 042
  18. IBUPROFEN [Concomitant]
     Route: 048
  19. ALEVE (CAPLET) [Concomitant]
     Dosage: 220 MG, UNK
     Route: 048
  20. COZAAR [Concomitant]
  21. CEFAZOLIN [Concomitant]
     Dosage: 1.0 GRAM
     Dates: start: 20080812, end: 20080812
  22. NIFEDIPINE [Concomitant]
     Dosage: 30 MG DAILY
     Route: 048
     Dates: start: 20080409
  23. PLAVIX [Concomitant]
     Dosage: 75 MG DAILY
     Route: 048
     Dates: start: 20080624
  24. HETASTARCH 6% IN 0.9% SODIUM CHLORIDE IN PLASTIC CONTAINER [Concomitant]
     Indication: CORONARY ARTERY BYPASS
     Dosage: UNK
     Dates: start: 20080812
  25. HEPARIN SODIUM [Concomitant]
     Dosage: 18.000 UNITES,THEN 5000 UNITS
     Route: 042
     Dates: start: 20080812, end: 20080812
  26. THROMBIN LOCAL SOLUTION [Concomitant]
     Dosage: UNK
     Route: 042
     Dates: start: 20080812, end: 20080812

REACTIONS (13)
  - RENAL INJURY [None]
  - STRESS [None]
  - UNEVALUABLE EVENT [None]
  - FEAR [None]
  - DEATH [None]
  - ANHEDONIA [None]
  - RENAL FAILURE [None]
  - ANXIETY [None]
  - PAIN [None]
  - RENAL IMPAIRMENT [None]
  - MULTI-ORGAN FAILURE [None]
  - EMOTIONAL DISTRESS [None]
  - INJURY [None]
